FAERS Safety Report 5210670-6 (Version None)
Quarter: 2007Q1

REPORT INFORMATION
  Report Type: 
  Country: None (occurrence: None)
  Receive Date: 20070117
  Receipt Date: 20070115
  Transmission Date: 20070707
  Serious: Yes (Other)
  Sender: FDA-Public Use
  Company Number: US-GLAXOSMITHKLINE-A0635684A

PATIENT
  Age: 63 Year
  Sex: Female

DRUGS (4)
  1. CARVEDILOL [Suspect]
     Indication: DRUG USE FOR UNKNOWN INDICATION
     Dosage: 6.25MG TWICE PER DAY
     Route: 048
     Dates: start: 20051101, end: 20061128
  2. CARDIZEM [Concomitant]
  3. FLOVENT [Concomitant]
  4. CRESTOR [Concomitant]

REACTIONS (4)
  - ASTHMA [None]
  - DIZZINESS [None]
  - DYSPNOEA [None]
  - FATIGUE [None]
